FAERS Safety Report 7110572-4 (Version None)
Quarter: 2010Q4

REPORT INFORMATION
  Report Type: 
  Country: None (occurrence: None)
  Receive Date: 20101118
  Receipt Date: 20101108
  Transmission Date: 20110411
  Serious: Yes (Hospitalization)
  Sender: FDA-Public Use
  Company Number: US-ROCHE-732559

PATIENT
  Sex: Female
  Weight: 67.1 kg

DRUGS (10)
  1. BEVACIZUMAB [Suspect]
     Route: 042
     Dates: start: 20100818, end: 20101010
  2. PEMETREXED [Suspect]
     Route: 042
     Dates: start: 20100818, end: 20101027
  3. CARBOPLATIN [Suspect]
     Dosage: DOSE:AUC OF 6
     Route: 065
     Dates: start: 20100818, end: 20101027
  4. TYLENOL (CAPLET) [Concomitant]
     Dosage: FREQUENCY:PRN
  5. DECADRON [Concomitant]
  6. CRESTOR [Concomitant]
  7. CENTRUM SILVER [Concomitant]
  8. NORVASC [Concomitant]
  9. KLONOPIN [Concomitant]
  10. DILANDIOL [Concomitant]

REACTIONS (13)
  - ASTHENIA [None]
  - BACK PAIN [None]
  - BLOOD CREATININE INCREASED [None]
  - CEREBRAL MICROANGIOPATHY [None]
  - CONDITION AGGRAVATED [None]
  - DEHYDRATION [None]
  - HYPERTENSION [None]
  - HYPOAESTHESIA [None]
  - LACUNAR INFARCTION [None]
  - MALIGNANT NEOPLASM PROGRESSION [None]
  - PULMONARY EMBOLISM [None]
  - SPINAL DISORDER [None]
  - VOMITING [None]
